FAERS Safety Report 5191529-X (Version None)
Quarter: 2006Q4

REPORT INFORMATION
  Report Type: 
  Country: None (occurrence: None)
  Receive Date: 20061226
  Receipt Date: 20061218
  Transmission Date: 20070319
  Serious: Yes (Hospitalization)
  Sender: FDA-Public Use
  Company Number: FR-ABBOTT-06P-056-0353632-00

PATIENT
  Age: 34 Year
  Sex: Male
  Weight: 65 kg

DRUGS (10)
  1. ZECLAR [Suspect]
     Indication: PYREXIA
     Route: 048
     Dates: start: 20061116, end: 20061118
  2. PREDNISONE TAB [Concomitant]
     Indication: RENAL TRANSPLANT
     Route: 048
     Dates: start: 19990101, end: 20061123
  3. PREDNISONE TAB [Concomitant]
     Route: 048
     Dates: start: 20061123
  4. ACETAMINOPHEN [Concomitant]
     Indication: DRUG USE FOR UNKNOWN INDICATION
     Route: 048
     Dates: start: 20061116, end: 20061123
  5. CEFIXIME CHEWABLE [Concomitant]
     Indication: NASOPHARYNGITIS
     Route: 048
     Dates: start: 20061101, end: 20061106
  6. MYCOPHENOLATE MOFETIL [Concomitant]
     Indication: RENAL TRANSPLANT
     Route: 048
     Dates: start: 20060701
  7. MYCOPHENOLATE MOFETIL [Concomitant]
  8. VALACYCLOVIR HCL [Concomitant]
     Indication: DRUG USE FOR UNKNOWN INDICATION
     Dates: start: 20061118, end: 20061127
  9. SUCARLFATE [Concomitant]
     Indication: DRUG USE FOR UNKNOWN INDICATION
     Dates: start: 20061118
  10. ACETAMINOPHEN- PROPOXYPHENE HCL TAB [Concomitant]
     Indication: DRUG USE FOR UNKNOWN INDICATION
     Dates: start: 20061118

REACTIONS (4)
  - AGRANULOCYTOSIS [None]
  - APHTHOUS STOMATITIS [None]
  - INFLAMMATION [None]
  - TONGUE ULCERATION [None]
